FAERS Safety Report 19578775 (Version 2)
Quarter: 2024Q2

REPORT INFORMATION
  Report Type: Report from Study
  Country: SE (occurrence: SE)
  Receive Date: 20210719
  Receipt Date: 20240402
  Transmission Date: 20240716
  Serious: Yes (Hospitalization, Other)
  Sender: FDA-Public Use
  Company Number: SE-TAKEDA-2021TUS043120

PATIENT
  Age: 67 Year
  Sex: Female

DRUGS (24)
  1. TEDUGLUTIDE [Suspect]
     Active Substance: TEDUGLUTIDE
     Indication: Product used for unknown indication
     Dosage: 3.8 MILLIGRAM, QD
     Route: 042
     Dates: start: 20141216, end: 20200220
  2. TEDUGLUTIDE [Suspect]
     Active Substance: TEDUGLUTIDE
     Indication: Product used for unknown indication
     Dosage: 3.8 MILLIGRAM, QD
     Route: 042
     Dates: start: 20141216, end: 20200220
  3. TEDUGLUTIDE [Suspect]
     Active Substance: TEDUGLUTIDE
     Indication: Product used for unknown indication
     Dosage: 3.8 MILLIGRAM, QD
     Route: 042
     Dates: start: 20141216, end: 20200220
  4. TEDUGLUTIDE [Suspect]
     Active Substance: TEDUGLUTIDE
     Indication: Product used for unknown indication
     Dosage: 3.8 MILLIGRAM, QD
     Route: 042
     Dates: start: 20141216, end: 20200220
  5. TEDUGLUTIDE [Suspect]
     Active Substance: TEDUGLUTIDE
     Dosage: 3.4 MILLIGRAM, QD
     Route: 042
     Dates: start: 20200220, end: 20210930
  6. TEDUGLUTIDE [Suspect]
     Active Substance: TEDUGLUTIDE
     Dosage: 3.4 MILLIGRAM, QD
     Route: 042
     Dates: start: 20200220, end: 20210930
  7. TEDUGLUTIDE [Suspect]
     Active Substance: TEDUGLUTIDE
     Dosage: 3.4 MILLIGRAM, QD
     Route: 042
     Dates: start: 20200220, end: 20210930
  8. TEDUGLUTIDE [Suspect]
     Active Substance: TEDUGLUTIDE
     Dosage: 3.4 MILLIGRAM, QD
     Route: 042
     Dates: start: 20200220, end: 20210930
  9. TEDUGLUTIDE [Suspect]
     Active Substance: TEDUGLUTIDE
     Dosage: 1.7 MILLIGRAM, QD
     Route: 042
     Dates: start: 20211001, end: 20220705
  10. TEDUGLUTIDE [Suspect]
     Active Substance: TEDUGLUTIDE
     Dosage: 1.7 MILLIGRAM, QD
     Route: 042
     Dates: start: 20211001, end: 20220705
  11. TEDUGLUTIDE [Suspect]
     Active Substance: TEDUGLUTIDE
     Dosage: 1.7 MILLIGRAM, QD
     Route: 042
     Dates: start: 20211001, end: 20220705
  12. TEDUGLUTIDE [Suspect]
     Active Substance: TEDUGLUTIDE
     Dosage: 1.7 MILLIGRAM, QD
     Route: 042
     Dates: start: 20211001, end: 20220705
  13. TEDUGLUTIDE [Suspect]
     Active Substance: TEDUGLUTIDE
     Dosage: 3.4 MILLIGRAM, QD
     Route: 042
     Dates: start: 20220706
  14. TEDUGLUTIDE [Suspect]
     Active Substance: TEDUGLUTIDE
     Dosage: 3.4 MILLIGRAM, QD
     Route: 042
     Dates: start: 20220706
  15. TEDUGLUTIDE [Suspect]
     Active Substance: TEDUGLUTIDE
     Dosage: 3.4 MILLIGRAM, QD
     Route: 042
     Dates: start: 20220706
  16. TEDUGLUTIDE [Suspect]
     Active Substance: TEDUGLUTIDE
     Dosage: 3.4 MILLIGRAM, QD
     Route: 042
     Dates: start: 20220706
  17. INCRUSE ELLIPTA [Concomitant]
     Active Substance: UMECLIDINIUM BROMIDE
     Indication: Chronic obstructive pulmonary disease
     Dosage: 1 PUFFS, QD
     Route: 048
     Dates: start: 20210209
  18. INNOHEP [Concomitant]
     Active Substance: TINZAPARIN SODIUM
     Indication: Thrombosis
     Dosage: 12000.00 INTERNATIONAL UNIT, QD
     Route: 058
     Dates: start: 20201110
  19. XIFAXAN [Concomitant]
     Active Substance: RIFAXIMIN
     Indication: Gastrointestinal bacterial overgrowth
     Dosage: 550.00 MILLIGRAM, BID
     Route: 048
     Dates: start: 20210129
  20. RESONIUM [Concomitant]
     Active Substance: SODIUM POLYSTYRENE SULFONATE
     Indication: Hyperkalaemia
     Dosage: 7.50 GRAM, QD
     Route: 048
     Dates: start: 20200928
  21. CIPROFLOXACIN [Concomitant]
     Active Substance: CIPROFLOXACIN
     Indication: Urinary tract infection
     Dosage: 500 MILLIGRAM, BID
     Route: 048
     Dates: start: 20221208, end: 20221212
  22. MINIFOM [Concomitant]
     Indication: Constipation
     Dosage: 100 MILLIGRAM
     Route: 048
     Dates: start: 20220512
  23. PRAMIPEXOLE [Concomitant]
     Active Substance: PRAMIPEXOLE\PRAMIPEXOLE DIHYDROCHLORIDE
     Indication: Restless legs syndrome
     Dosage: UNK
     Route: 048
     Dates: start: 20220307
  24. OXAZEPAM [Concomitant]
     Active Substance: OXAZEPAM
     Indication: Relaxation therapy
     Dosage: 10 MILLIGRAM
     Route: 048
     Dates: start: 20220307

REACTIONS (1)
  - Acute kidney injury [Recovered/Resolved]

NARRATIVE: CASE EVENT DATE: 20210119
